FAERS Safety Report 17925626 (Version 1)
Quarter: 2020Q2

REPORT INFORMATION
  Report Type: Spontaneous
  Country: MX (occurrence: MX)
  Receive Date: 20200622
  Receipt Date: 20200622
  Transmission Date: 20200714
  Serious: Yes (Other)
  Sender: FDA-Public Use
  Company Number: NVSC2020MX172269

PATIENT
  Age: 56 Year
  Sex: Female

DRUGS (5)
  1. METHOTREXATE. [Suspect]
     Active Substance: METHOTREXATE
     Indication: MORPHOEA
     Dosage: 20 MG, QW
     Route: 065
  2. DEFLAZACORT [Suspect]
     Active Substance: DEFLAZACORT
     Dosage: 6 MG,QD
     Route: 065
  3. BETAMETHASONE. [Suspect]
     Active Substance: BETAMETHASONE
     Indication: MORPHOEA
     Dosage: UNK
     Route: 061
  4. DEFLAZACORT [Suspect]
     Active Substance: DEFLAZACORT
     Indication: MORPHOEA
     Dosage: 0.5 MG/KG, QD
     Route: 065
  5. CALCIPOTRIOL [Suspect]
     Active Substance: CALCIPOTRIENE
     Indication: MORPHOEA
     Dosage: UNK
     Route: 065

REACTIONS (2)
  - Product use in unapproved indication [Unknown]
  - Morphoea [Unknown]
